FAERS Safety Report 6760689-9 (Version None)
Quarter: 2010Q2

REPORT INFORMATION
  Report Type: 
  Country: None (occurrence: None)
  Receive Date: 20100608
  Receipt Date: 20100602
  Transmission Date: 20101027
  Serious: Yes (Other)
  Sender: FDA-Public Use
  Company Number: PT-GILEAD-2010-0028463

PATIENT
  Sex: Female
  Weight: 52 kg

DRUGS (3)
  1. VIREAD [Suspect]
     Indication: HIV INFECTION
     Dates: start: 20070101
  2. EMTRIVA [Concomitant]
     Indication: HIV INFECTION
  3. LOPINAVIR [Concomitant]

REACTIONS (3)
  - BONE PAIN [None]
  - OSTEOPOROSIS [None]
  - PATHOLOGICAL FRACTURE [None]
